FAERS Safety Report 12386273 (Version 2)
Quarter: 2016Q2

REPORT INFORMATION
  Report Type: Spontaneous
  Country: GB (occurrence: GB)
  Receive Date: 20160519
  Receipt Date: 20160614
  Transmission Date: 20160815
  Serious: Yes (Hospitalization, Other)
  Sender: FDA-Public Use
  Company Number: GB-ELI_LILLY_AND_COMPANY-GB201605004991

PATIENT
  Age: 58 Year
  Sex: Female
  Weight: 86.2 kg

DRUGS (8)
  1. ANASTROZOLE. [Concomitant]
     Active Substance: ANASTROZOLE
     Dosage: 1 MG, QD
     Route: 065
  2. BISOPROLOL [Concomitant]
     Active Substance: BISOPROLOL
     Dosage: 2.5 MG, UNKNOWN
  3. TROPIDROL [Concomitant]
     Dosage: UNK, UNKNOWN
     Route: 065
  4. RAMIPRIL. [Concomitant]
     Active Substance: RAMIPRIL
  5. TRULICITY [Suspect]
     Active Substance: DULAGLUTIDE
     Indication: TYPE 2 DIABETES MELLITUS
     Dosage: 0.75 MG, WEEKLY (1/W)
     Route: 058
     Dates: start: 20160108, end: 20160317
  6. SOLIFENACIN [Concomitant]
     Active Substance: SOLIFENACIN
     Dosage: 5 MG, QD
     Route: 065
  7. ATORVASTATIN [Concomitant]
     Active Substance: ATORVASTATIN
     Dosage: 10 MG, QD
  8. ACETYLSALICYLIC ACID [Concomitant]
     Active Substance: ASPIRIN
     Dosage: 75 MG, QD
     Route: 065

REACTIONS (2)
  - Myocardial infarction [Recovering/Resolving]
  - Electrocardiogram T wave abnormal [Recovering/Resolving]

NARRATIVE: CASE EVENT DATE: 20160225
